FAERS Safety Report 5828705-6 (Version None)
Quarter: 2008Q3

REPORT INFORMATION
  Report Type: 
  Country: None (occurrence: None)
  Receive Date: 20080731
  Receipt Date: 20080724
  Transmission Date: 20090109
  Serious: Yes (Other)
  Sender: FDA-Public Use
  Company Number: NL-WYE-G01916108

PATIENT
  Age: 41 Year
  Sex: Female
  Weight: 105 kg

DRUGS (1)
  1. EFFEXOR XR [Suspect]
     Indication: ANXIETY
     Dates: start: 20050201, end: 20080401

REACTIONS (13)
  - AFFECT LABILITY [None]
  - DEPRESSION [None]
  - DEREALISATION [None]
  - DIZZINESS [None]
  - DRUG WITHDRAWAL HEADACHE [None]
  - DRUG WITHDRAWAL SYNDROME [None]
  - FEELING ABNORMAL [None]
  - HAEMATOMA [None]
  - MYALGIA [None]
  - SELF-INJURIOUS IDEATION [None]
  - SUSPICIOUSNESS [None]
  - VISION BLURRED [None]
  - WEIGHT INCREASED [None]
